FAERS Safety Report 5682633-8 (Version None)
Quarter: 2008Q1

REPORT INFORMATION
  Report Type: 
  Country: None (occurrence: None)
  Receive Date: 20080327
  Receipt Date: 20080114
  Transmission Date: 20080703
  Serious: No
  Sender: FDA-Public Use
  Company Number: US-BRISTOL-MYERS SQUIBB COMPANY-14041800

PATIENT

DRUGS (1)
  1. ORENCIA [Suspect]
     Route: 042
     Dates: start: 20080101

REACTIONS (2)
  - CHILLS [None]
  - TREMOR [None]
